FAERS Safety Report 6243517-X (Version None)
Quarter: 2009Q2

REPORT INFORMATION
  Report Type: 
  Country: None (occurrence: None)
  Receive Date: 20090624
  Receipt Date: 20090612
  Transmission Date: 20091009
  Serious: Yes (Hospitalization, Other)
  Sender: FDA-Public Use
  Company Number: PHHY2009BR23508

PATIENT
  Age: 79 Year
  Sex: Male

DRUGS (2)
  1. EXELON [Suspect]
     Indication: DEMENTIA ALZHEIMER'S TYPE
     Dosage: 18MG/10CM2
     Route: 062
  2. EXELON [Suspect]
     Dosage: 9MG/5CM2
     Route: 062
     Dates: start: 20090611

REACTIONS (7)
  - BLOOD PRESSURE DECREASED [None]
  - FALL [None]
  - HEAD INJURY [None]
  - INJURY [None]
  - LOSS OF CONSCIOUSNESS [None]
  - SUTURE INSERTION [None]
  - TRAUMATIC BRAIN INJURY [None]
